FAERS Safety Report 4833945-9 (Version None)
Quarter: 2005Q4

REPORT INFORMATION
  Report Type: 
  Country: None (occurrence: None)
  Receive Date: 20051118
  Receipt Date: 20051118
  Transmission Date: 20060501
  Serious: No
  Sender: FDA-Public Use
  Company Number: None

PATIENT
  Age: 44 Year
  Sex: Male
  Weight: 70.3075 kg

DRUGS (1)
  1. LEXAPRO [Suspect]
     Indication: ANXIETY
     Dosage: 10MG ONCE DAILY PO
     Route: 048
     Dates: start: 20040125, end: 20050203

REACTIONS (5)
  - BLOOD BILIRUBIN INCREASED [None]
  - ERYTHEMA [None]
  - HOT FLUSH [None]
  - SKIN DISORDER [None]
  - SKIN TIGHTNESS [None]
